FAERS Safety Report 8430499-5 (Version None)
Quarter: 2012Q2

REPORT INFORMATION
  Report Type: 
  Country: None (occurrence: None)
  Receive Date: 20120606
  Receipt Date: 20120606
  Transmission Date: 20120825
  Serious: Yes (Hospitalization, Other)
  Sender: FDA-Public Use
  Company Number: None

PATIENT
  Age: 53 Year
  Sex: Male

DRUGS (1)
  1. NAPROXEN [Suspect]
     Dosage: 250 MG BID PO
     Route: 048

REACTIONS (5)
  - RESPIRATORY DISTRESS [None]
  - HAEMATOCRIT DECREASED [None]
  - DUODENAL ULCER [None]
  - PYREXIA [None]
  - GASTRIC HAEMORRHAGE [None]
